FAERS Safety Report 5003132-2 (Version None)
Quarter: 2006Q2

REPORT INFORMATION
  Report Type: 
  Country: None (occurrence: None)
  Receive Date: 20060516
  Receipt Date: 20050321
  Transmission Date: 20061013
  Serious: Yes (Hospitalization, Disabling)
  Sender: FDA-Public Use
  Company Number: US-MERCK-0503USA03761

PATIENT
  Age: 46 Year
  Sex: Male
  Weight: 86 kg

DRUGS (4)
  1. VIOXX [Suspect]
     Indication: ARTHRALGIA
     Route: 048
     Dates: start: 20001101, end: 20021201
  2. CARDIZEM [Concomitant]
     Route: 065
  3. ZIAC [Concomitant]
     Route: 065
  4. VIOXX [Suspect]
     Indication: OSTEOARTHRITIS
     Route: 048
     Dates: start: 20001101, end: 20021201

REACTIONS (7)
  - ANGINA UNSTABLE [None]
  - CORONARY ARTERY DISEASE [None]
  - COUGH [None]
  - DYSLIPIDAEMIA [None]
  - MYOCARDIAL INFARCTION [None]
  - POLYURIA [None]
  - UPPER RESPIRATORY TRACT INFECTION [None]
